FAERS Safety Report 5254339-0 (Version None)
Quarter: 2007Q1

REPORT INFORMATION
  Report Type: 
  Country: None (occurrence: None)
  Receive Date: 20070302
  Receipt Date: 20070214
  Transmission Date: 20070707
  Serious: Yes (Other)
  Sender: FDA-Public Use
  Company Number: US-NOVOPROD-260958

PATIENT
  Age: 64 Year
  Sex: Female

DRUGS (1)
  1. VAGIFEM [Suspect]
     Indication: ATROPHIC VULVOVAGINITIS
     Dosage: 1 TAB, BIW
     Route: 067
     Dates: start: 20060301

REACTIONS (2)
  - DRUG INEFFECTIVE [None]
  - SMEAR CERVIX ABNORMAL [None]
